FAERS Safety Report 11157883 (Version 1)
Quarter: 2015Q2

REPORT INFORMATION
  Report Type: Spontaneous
  Country: US (occurrence: None)
  Receive Date: 20150601
  Receipt Date: 20150601
  Transmission Date: 20150821
  Serious: Yes (Other)
  Sender: FDA-Public Use
  Company Number: 3005126704-2015-00001

PATIENT
  Sex: Male

DRUGS (3)
  1. BUPIVACAINE [Suspect]
     Active Substance: BUPIVACAINE
     Indication: PROCEDURAL PAIN
     Dosage: 5ML/HR, SCIATIC CPNB
  2. MC0050L DISPOSABLE INFUSION DEVICE [Concomitant]
  3. B.BRAUN CATHETER [Concomitant]

REACTIONS (1)
  - Dysgeusia [None]
